FAERS Safety Report 5216392-X (Version None)
Quarter: 2007Q1

REPORT INFORMATION
  Report Type: 
  Country: None (occurrence: None)
  Receive Date: 20070118
  Receipt Date: 20070104
  Transmission Date: 20070707
  Serious: Yes (Hospitalization)
  Sender: FDA-Public Use
  Company Number: 2006BI013602

PATIENT
  Age: 40 Year
  Sex: Female
  Weight: 78.9259 kg

DRUGS (6)
  1. AVONEX [Suspect]
     Indication: MULTIPLE SCLEROSIS
     Dosage: 30 UG;QW;IM
     Route: 030
     Dates: start: 20060101
  2. INSULIN [Concomitant]
  3. PRAZOSIN HCL [Concomitant]
  4. CLONIDINE [Concomitant]
  5. PREVACID [Concomitant]
  6. SYNTHROID [Concomitant]

REACTIONS (2)
  - BLOOD CHOLESTEROL INCREASED [None]
  - CEREBROVASCULAR ACCIDENT [None]
